FAERS Safety Report 8175115-5 (Version None)
Quarter: 2012Q1

REPORT INFORMATION
  Report Type: 
  Country: None (occurrence: None)
  Receive Date: 20120229
  Receipt Date: 20120223
  Transmission Date: 20120608
  Serious: Yes (Hospitalization)
  Sender: FDA-Public Use
  Company Number: PHHY2012DE012440

PATIENT
  Sex: Male

DRUGS (2)
  1. SANDIMMUNE [Concomitant]
     Indication: PROPHYLAXIS AGAINST TRANSPLANT REJECTION
     Dosage: UNK UKN, UNK
     Route: 048
     Dates: start: 20110401
  2. CERTICAN [Suspect]
     Indication: PROPHYLAXIS AGAINST TRANSPLANT REJECTION
     Dosage: 1.5 MG, PER DAY
     Route: 048
     Dates: start: 20111101

REACTIONS (4)
  - BONE MARROW ISCHAEMIA [None]
  - MOBILITY DECREASED [None]
  - PAIN [None]
  - ARTHRALGIA [None]
